FAERS Safety Report 4993836-X (Version None)
Quarter: 2006Q2

REPORT INFORMATION
  Report Type: 
  Country: None (occurrence: None)
  Receive Date: 20060503
  Receipt Date: 20060420
  Transmission Date: 20061013
  Serious: Yes (Hospitalization)
  Sender: FDA-Public Use
  Company Number: 13904

PATIENT
  Age: 72 Year
  Sex: Male
  Weight: 80 kg

DRUGS (4)
  1. FLUOROURACIL [Suspect]
     Indication: BILIARY NEOPLASM
     Dosage: 375 MG/M2 DAILY IV
     Route: 042
     Dates: start: 20060130
  2. FLUOROURACIL [Suspect]
  3. LEUCOVORIN [Suspect]
     Indication: BILIARY NEOPLASM
     Dosage: 25 MG/M2 DAILY IV
     Route: 042
     Dates: start: 20060130
  4. LEUCOVORIN [Suspect]

REACTIONS (3)
  - FALL [None]
  - NAUSEA [None]
  - VOMITING [None]
